FAERS Safety Report 13333834 (Version 1)
Quarter: 2017Q1

REPORT INFORMATION
  Report Type: Report from Study
  Country: US (occurrence: US)
  Receive Date: 20170313
  Receipt Date: 20170313
  Transmission Date: 20170428
  Serious: Yes (Hospitalization)
  Sender: FDA-Public Use
  Company Number: US-ACTELION-A-NJ2017-150791

PATIENT
  Age: 56 Year
  Sex: Female

DRUGS (12)
  1. KEPPRA [Concomitant]
     Active Substance: LEVETIRACETAM
  2. ALDACTONE [Concomitant]
     Active Substance: SPIRONOLACTONE
  3. METOPROLOL SUCCINATE. [Concomitant]
     Active Substance: METOPROLOL SUCCINATE
  4. TRACLEER [Suspect]
     Active Substance: BOSENTAN
     Indication: PULMONARY ARTERIAL HYPERTENSION
     Dosage: 125 MG, BID
     Route: 048
     Dates: start: 20130531
  5. PERCOCET [Concomitant]
     Active Substance: ACETAMINOPHEN\OXYCODONE HYDROCHLORIDE
  6. LEXAPRO [Concomitant]
     Active Substance: ESCITALOPRAM OXALATE
  7. TRILEPTAL [Concomitant]
     Active Substance: OXCARBAZEPINE
  8. REVATIO [Concomitant]
     Active Substance: SILDENAFIL CITRATE
  9. METHOTREXATE. [Concomitant]
     Active Substance: METHOTREXATE
  10. SONATA [Concomitant]
     Active Substance: ZALEPLON
  11. BENZTROPINE [Concomitant]
     Active Substance: BENZTROPINE
  12. ROBAXIN [Concomitant]
     Active Substance: METHOCARBAMOL

REACTIONS (1)
  - Bladder disorder [Unknown]

NARRATIVE: CASE EVENT DATE: 20170301
